FAERS Safety Report 9303677 (Version 3)
Quarter: 2013Q4

REPORT INFORMATION
  Report Type: Report from Study
  Country: FR (occurrence: FR)
  Receive Date: 20130522
  Receipt Date: 20131009
  Transmission Date: 20140711
  Serious: Yes (Hospitalization)
  Sender: FDA-Public Use
  Company Number: FR-ROCHE-1221812

PATIENT
  Age: 72 Year
  Sex: Male
  Weight: 77 kg

DRUGS (35)
  1. PERTUZUMAB [Suspect]
     Indication: HER-2 POSITIVE BREAST CANCER
     Dosage: LOADING DOSE AS PER PROTOCOL.
     Route: 042
     Dates: start: 20130129, end: 20130129
  2. PERTUZUMAB [Suspect]
     Dosage: START DATE OF MAINTENANCE DOSE ESTIMATED AS PER FREQUENCY AND PROTOCOL. THE LAST DOSE PRIOR TO THE E
     Route: 042
     Dates: start: 20130219
  3. TRASTUZUMAB [Suspect]
     Indication: HER-2 POSITIVE BREAST CANCER
     Dosage: LOADING DOSE AS PER PROTOCOL.
     Route: 042
     Dates: start: 20130129, end: 20130129
  4. TRASTUZUMAB [Suspect]
     Dosage: START DATE OF MAINTENANCE DOSE ESTIMATED AS PER FREQUENCY AND PROTOCOL. THE LAST DOSE PRIOR TO THE E
     Route: 042
     Dates: start: 20130219
  5. PACLITAXEL [Suspect]
     Indication: HER-2 POSITIVE BREAST CANCER
     Dosage: THE LAST DOSE PRIOR TO THE EVENT WAS ON 25/APR/2013. PERMANENTLY DISCONTINUED ON 02/MAY/2013.
     Route: 042
     Dates: start: 20130130, end: 20130502
  6. SODIUM BICARBONATE [Concomitant]
     Route: 048
     Dates: start: 20130418, end: 20130510
  7. PRADAXA [Concomitant]
     Indication: ARRHYTHMIA
     Route: 065
     Dates: start: 20130111, end: 20130502
  8. COAPROVEL [Concomitant]
     Route: 065
     Dates: start: 20130111, end: 20130507
  9. CARDENALIN [Concomitant]
     Indication: ARRHYTHMIA
     Route: 065
     Dates: start: 20130111
  10. DEXAMETHASONE [Concomitant]
     Indication: PROPHYLAXIS
     Route: 065
     Dates: start: 20130130, end: 20130130
  11. DEXAMETHASONE [Concomitant]
     Route: 065
     Dates: start: 20130206, end: 20130425
  12. POLARAMINE [Concomitant]
     Indication: PROPHYLAXIS
     Route: 065
     Dates: start: 20130130, end: 20130130
  13. RANITIDINE [Concomitant]
     Indication: PROPHYLAXIS
     Route: 065
     Dates: start: 20130130, end: 20130425
  14. ZOPHREN [Concomitant]
     Indication: PROPHYLAXIS OF NAUSEA AND VOMITING
     Route: 065
     Dates: start: 20130130, end: 20130425
  15. XYZALL [Concomitant]
     Indication: PROPHYLAXIS
     Route: 065
     Dates: start: 20130206, end: 20130425
  16. SMECTA (FRANCE) [Concomitant]
     Dosage: TOTAL DAILY DOSE: 3-4 PACKETS.
     Route: 065
     Dates: start: 20130207, end: 20130218
  17. SMECTA (FRANCE) [Concomitant]
     Dosage: TOTAL DAILY DOSE: 3-4 PACKETS.
     Route: 065
     Dates: start: 20130503, end: 20130517
  18. IMODIUM [Concomitant]
     Route: 065
     Dates: start: 20130207, end: 20130218
  19. NOROXINE [Concomitant]
     Route: 065
     Dates: start: 20130327, end: 20130401
  20. XATRAL [Concomitant]
     Indication: BENIGN PROSTATIC HYPERPLASIA
     Route: 065
     Dates: start: 20130401
  21. LOXEN [Concomitant]
     Route: 065
     Dates: start: 20130327, end: 20130327
  22. TRIFLUCAN [Concomitant]
     Route: 065
     Dates: start: 20130418, end: 20130425
  23. TRIFLUCAN [Concomitant]
     Route: 065
     Dates: start: 20130429, end: 20130510
  24. INSULIN [Concomitant]
     Route: 065
     Dates: start: 20130430
  25. BRICANYL [Concomitant]
     Route: 065
     Dates: start: 20130429, end: 20130510
  26. IPRATROPIUM [Concomitant]
     Route: 065
     Dates: start: 20130429, end: 20130510
  27. NOVORAPID [Concomitant]
     Route: 065
     Dates: start: 20130429
  28. DOLIPRANE [Concomitant]
     Route: 065
     Dates: start: 20130430
  29. ALOPLASTINE [Concomitant]
     Dosage: 1 APPLICATION AS NEEDED
     Route: 065
     Dates: start: 20130429, end: 20130511
  30. DIFFU-K [Concomitant]
     Route: 065
     Dates: start: 20130507
  31. AMOXICILLIN SODIUM/CLAVULANATE POTASSIUM [Concomitant]
     Route: 065
     Dates: start: 20130502, end: 20130502
  32. APROVEL [Concomitant]
     Route: 065
     Dates: start: 20130518
  33. LASILIX [Concomitant]
     Route: 065
     Dates: start: 20130508, end: 20130510
  34. SINTROM [Concomitant]
     Route: 065
     Dates: start: 20130522
  35. PIPERACILLIN SODIUM/TAZOBACTAM [Concomitant]
     Route: 065
     Dates: start: 20130516, end: 20130617

REACTIONS (1)
  - General physical health deterioration [Recovered/Resolved with Sequelae]
